FAERS Safety Report 7689817-8 (Version None)
Quarter: 2011Q3

REPORT INFORMATION
  Report Type: 
  Country: None (occurrence: None)
  Receive Date: 20110818
  Receipt Date: 20110705
  Transmission Date: 20111222
  Serious: Yes (Hospitalization, Disabling, Other)
  Sender: FDA-Public Use
  Company Number: HU-BIOGENIDEC-2011BI023398

PATIENT
  Age: 53 Year
  Sex: Female
  Weight: 98 kg

DRUGS (6)
  1. TYSABRI [Suspect]
     Indication: MULTIPLE SCLEROSIS
     Route: 042
     Dates: start: 20090924, end: 20110222
  2. MEFORAL [Concomitant]
     Indication: DIABETES MELLITUS
     Dates: start: 20110120
  3. XANAX [Concomitant]
     Indication: ANXIETY
     Dates: start: 20070101
  4. BACLOFEN [Concomitant]
     Indication: MUSCLE SPASMS
     Dates: start: 20060101
  5. CITAPRAM [Concomitant]
     Indication: DEPRESSION
     Route: 048
     Dates: start: 20080101
  6. IRON SUPPLEMENTATION [Concomitant]
     Indication: IRON DEFICIENCY
     Route: 048

REACTIONS (4)
  - ANAEMIA [None]
  - COLORECTAL CANCER [None]
  - DEEP VEIN THROMBOSIS [None]
  - ASTHENIA [None]
